FAERS Safety Report 6698989-3 (Version None)
Quarter: 2010Q2

REPORT INFORMATION
  Report Type: 
  Country: None (occurrence: None)
  Receive Date: 20100427
  Receipt Date: 20100423
  Transmission Date: 20101027
  Serious: Yes (Life-Threatening, Hospitalization, Other)
  Sender: FDA-Public Use
  Company Number: DE-BAYER-201013300GPV

PATIENT
  Age: 50 Year
  Sex: Female

DRUGS (8)
  1. AVELOX [Suspect]
     Indication: PNEUMONIA
     Route: 042
     Dates: start: 20100113, end: 20100120
  2. AVASTIN [Suspect]
     Indication: BRONCHIAL CARCINOMA
     Dates: start: 20090903, end: 20100106
  3. OMEPRAZOLE [Concomitant]
     Route: 065
  4. CANCIDAS [Concomitant]
     Indication: PNEUMONIA
     Route: 065
     Dates: start: 20100113, end: 20100125
  5. METOPROLOL SUCCINATE [Concomitant]
     Route: 065
  6. CISPLATIN [Concomitant]
     Dates: start: 20090903, end: 20100106
  7. VINORELBINE [Concomitant]
     Dates: start: 20090903, end: 20091117
  8. CLEXANE [Concomitant]

REACTIONS (2)
  - FAILURE TO ANASTOMOSE [None]
  - INTESTINAL PERFORATION [None]
